FAERS Safety Report 15023573 (Version 1)
Quarter: 2018Q2

REPORT INFORMATION
  Report Type: Spontaneous
  Country: GB (occurrence: GB)
  Receive Date: 20180618
  Receipt Date: 20180618
  Transmission Date: 20180711
  Serious: Yes (Hospitalization, Other)
  Sender: FDA-Public Use
  Company Number: GB-TEVA-2018-GB-910703

PATIENT
  Age: 81 Year
  Sex: Female
  Weight: 55 kg

DRUGS (13)
  1. MIRABEGRON [Concomitant]
     Active Substance: MIRABEGRON
     Dosage: 25 MILLIGRAM DAILY; AT NIGHT
     Dates: start: 20180306
  2. SODIUM HYALURONATE [Concomitant]
     Active Substance: HYALURONATE SODIUM
     Dosage: 2 DOSAGE FORMS DAILY; INTO BOTH EYES
     Route: 050
     Dates: start: 20180411, end: 20180425
  3. ACETYLCYSTEINE. [Concomitant]
     Active Substance: ACETYLCYSTEINE
     Dosage: 2 DOSAGE FORMS DAILY; DROP EACH EYE
     Route: 050
     Dates: start: 20170203
  4. RIVAROXABAN [Concomitant]
     Active Substance: RIVAROXABAN
     Dosage: 15 MILLIGRAM DAILY;
     Dates: start: 20170516
  5. NITROFURANTOIN. [Suspect]
     Active Substance: NITROFURANTOIN
     Dates: start: 20180306
  6. LEVOTHYROXINE. [Concomitant]
     Active Substance: LEVOTHYROXINE
     Dosage: 50 MICROGRAM DAILY;
     Dates: start: 20151112
  7. LACRI-LUBE [Concomitant]
     Dosage: 1 DOSAGE FORMS DAILY; INTO BOTH EYES AT NIGHT
     Route: 050
     Dates: start: 20170203
  8. AMOXICILLIN. [Concomitant]
     Active Substance: AMOXICILLIN
     Dosage: 500 MILLIGRAM DAILY; AT NIGHT FOR 2 MONTHS
     Dates: start: 20180411, end: 20180425
  9. NITROFURANTOIN. [Suspect]
     Active Substance: NITROFURANTOIN
     Indication: PROPHYLAXIS
     Dates: start: 201801
  10. BISOPROLOL [Concomitant]
     Active Substance: BISOPROLOL
     Dosage: 12.5 MILLIGRAM DAILY;
     Dates: start: 20170221
  11. HYLO-FORTE [Concomitant]
     Active Substance: HYALURONATE SODIUM
     Dosage: USE AS DIRECTED
     Dates: start: 20170203
  12. FOLIC ACID. [Concomitant]
     Active Substance: FOLIC ACID
     Dosage: 5 MILLIGRAM DAILY;
     Dates: start: 20180411, end: 20180425
  13. MICONAZOLE. [Concomitant]
     Active Substance: MICONAZOLE
     Dosage: 4 DOSAGE FORMS DAILY;
     Dates: start: 20180306, end: 20180311

REACTIONS (3)
  - Liver injury [Unknown]
  - Hepatic cirrhosis [Unknown]
  - Jaundice [Unknown]

NARRATIVE: CASE EVENT DATE: 20180503
